FAERS Safety Report 8832897 (Version 7)
Quarter: 2012Q4

REPORT INFORMATION
  Report Type: Report from Study
  Country: US (occurrence: US)
  Receive Date: 20121010
  Receipt Date: 20121205
  Transmission Date: 20130627
  Serious: Yes (Hospitalization)
  Sender: FDA-Public Use
  Company Number: US-AMGEN-USACT2012063722

PATIENT
  Age: 52 Year
  Sex: Female
  Weight: 48.53 kg

DRUGS (20)
  1. PANITUMUMAB [Suspect]
     Indication: NON-SMALL CELL LUNG CANCER
     Dosage: 470 mg, UNK
     Dates: start: 20120824, end: 20120919
  2. CARBOPLATIN [Concomitant]
     Indication: NON-SMALL CELL LUNG CANCER
     Dosage: 866 mg, UNK
     Route: 042
     Dates: start: 20120824
  3. PEMETREXED [Concomitant]
     Indication: NON-SMALL CELL LUNG CANCER
     Dosage: 735 mg, UNK
     Route: 042
     Dates: start: 20120824
  4. FOLIC ACID [Concomitant]
     Indication: NON-SMALL CELL LUNG CANCER
     Dosage: 1 mg, UNK
     Route: 048
     Dates: start: 20120730
  5. VITAMIN B12 [Concomitant]
     Indication: NON-SMALL CELL LUNG CANCER
     Dosage: 1000 mug, UNK
     Route: 030
     Dates: start: 20120730
  6. NIFEDICAL [Concomitant]
     Indication: HYPERTENSION
     Dosage: 60 mg, UNK
     Dates: start: 20070101
  7. TRILEPTAL [Concomitant]
     Indication: CONVULSION
     Dosage: 300 mg, bid
     Dates: start: 20120418
  8. LORATAB [Concomitant]
     Indication: PAIN
     Dosage: UNK
     Dates: start: 201008
  9. LORATAB [Concomitant]
     Indication: RAYNAUD^S PHENOMENON
  10. ZANTAC [Concomitant]
     Indication: DYSPEPSIA
     Dosage: 150 mg, qd
     Dates: start: 20020101
  11. DOXYCYCLINE [Concomitant]
     Indication: RASH
     Dosage: 100 mg, bid
     Dates: start: 20120910
  12. HYDROCORTISONE [Concomitant]
     Indication: RASH
     Dosage: UNK
     Dates: start: 20120910
  13. EUCERIN [Concomitant]
     Indication: RASH
     Dosage: UNK
     Dates: start: 20120910
  14. CLEOCIN [Concomitant]
     Indication: RASH
     Dosage: UNK
     Dates: start: 20120910
  15. MAGNESIUM OXIDE [Concomitant]
     Indication: HYPOMAGNESAEMIA
     Dosage: 400 mg, UNK
     Dates: start: 20120913
  16. DIPHENHYDRAMINE HCL W/LIDOCAINE/ NYSTATIN [Concomitant]
     Indication: MUCOSAL INFLAMMATION
     Dosage: 15 UNK, UNK
     Dates: start: 20120912
  17. NEULASTA [Concomitant]
  18. AMOXICILLIN [Concomitant]
  19. RED BLOOD CELLS [Concomitant]
     Dosage: UNK
  20. ZOFRAN [Concomitant]
     Dosage: UNK
     Route: 042
     Dates: start: 20120927

REACTIONS (5)
  - Pancytopenia [Recovered/Resolved]
  - Hypokalaemia [Recovered/Resolved]
  - Diarrhoea [Recovered/Resolved]
  - Dehydration [Recovered/Resolved]
  - Stomatitis [Recovered/Resolved]
